FAERS Safety Report 6084677-3 (Version None)
Quarter: 2009Q1

REPORT INFORMATION
  Report Type: 
  Country: None (occurrence: None)
  Receive Date: 20090217
  Receipt Date: 20090204
  Transmission Date: 20090719
  Serious: Yes (Hospitalization)
  Sender: FDA-Public Use
  Company Number: HPEU-2009-003

PATIENT
  Age: 57 Year
  Sex: Male

DRUGS (1)
  1. PYLERA [Suspect]
     Indication: HELICOBACTER INFECTION
     Dosage: 12 CAPSULES OF PYLERA AND 2 TABLETS OF OMEPRAZOLE
     Route: 048
     Dates: start: 20081016, end: 20081025

REACTIONS (3)
  - ECZEMA [None]
  - FOOD ALLERGY [None]
  - MYCOSIS FUNGOIDES [None]
